FAERS Safety Report 12109800 (Version 1)
Quarter: 2016Q1

REPORT INFORMATION
  Report Type: Spontaneous
  Country: US (occurrence: None)
  Receive Date: 20160223
  Receipt Date: 20160223
  Transmission Date: 20160526
  Serious: Yes (Other)
  Sender: FDA-Public Use
  Company Number: None

PATIENT
  Age: 45 Year
  Sex: Female
  Weight: 68.04 kg

DRUGS (14)
  1. NUVIGIL [Concomitant]
     Active Substance: ARMODAFINIL
  2. MONTELUKAST [Concomitant]
     Active Substance: MONTELUKAST SODIUM
  3. VITAMIN C [Concomitant]
     Active Substance: ASCORBIC ACID
  4. LISENE VITAMINS [Concomitant]
  5. TYLENOL [Concomitant]
     Active Substance: ACETAMINOPHEN
  6. DULOXETINE. [Concomitant]
     Active Substance: DULOXETINE
  7. DILTIAZEM [Concomitant]
     Active Substance: DILTIAZEM
  8. RAMIPRIL. [Concomitant]
     Active Substance: RAMIPRIL
  9. HYDROCHLOROTHIAZIDE. [Concomitant]
     Active Substance: HYDROCHLOROTHIAZIDE
  10. VITAMIN B [Concomitant]
     Active Substance: VITAMIN B
  11. MOTRINE [Concomitant]
  12. LIPITOR [Suspect]
     Active Substance: ATORVASTATIN CALCIUM
     Indication: BLOOD CHOLESTEROL
     Dosage: 1 PILL, ONCE DAILY, TAKEN BY MOUTH
     Dates: start: 20120101, end: 20160114
  13. LEVOCETIRIZINE DIHYDRO [Concomitant]
  14. FLEXEROL [Concomitant]

REACTIONS (10)
  - Aphthous ulcer [None]
  - Skin exfoliation [None]
  - Stress [None]
  - Swollen tongue [None]
  - Oesophageal spasm [None]
  - Oral discomfort [None]
  - Hypophagia [None]
  - Lip swelling [None]
  - Lip dry [None]
  - Ageusia [None]

NARRATIVE: CASE EVENT DATE: 20160114
